FAERS Safety Report 8225938-9 (Version None)
Quarter: 2012Q1

REPORT INFORMATION
  Report Type: 
  Country: None (occurrence: None)
  Receive Date: 20120321
  Receipt Date: 20120316
  Transmission Date: 20120608
  Serious: Yes (Death, Hospitalization, Other)
  Sender: FDA-Public Use
  Company Number: US-PFIZER INC-2012068993

PATIENT
  Age: 69 Year
  Sex: Female
  Weight: 63.6 kg

DRUGS (2)
  1. PLAQUENIL [Suspect]
     Indication: UTERINE LEIOMYOSARCOMA
     Dosage: 200 MG, CYCLIC
     Route: 048
     Dates: start: 20120130, end: 20120205
  2. SUTENT [Suspect]
     Indication: UTERINE LEIOMYOSARCOMA
     Dosage: 50 MG, CYCLIC
     Route: 048
     Dates: start: 20120130, end: 20120205

REACTIONS (7)
  - LYMPHOCYTE COUNT DECREASED [None]
  - DEATH [None]
  - CONFUSIONAL STATE [None]
  - FATIGUE [None]
  - BLOOD CREATININE INCREASED [None]
  - DELIRIUM [None]
  - NAUSEA [None]
